FAERS Safety Report 7224667-8 (Version None)
Quarter: 2011Q1

REPORT INFORMATION
  Report Type: 
  Country: None (occurrence: None)
  Receive Date: 20110113
  Receipt Date: 20110105
  Transmission Date: 20110831
  Serious: Yes (Other)
  Sender: FDA-Public Use
  Company Number: US-NOVOPROD-317747

PATIENT
  Age: 35 Year
  Sex: Female
  Weight: 118.37 kg

DRUGS (9)
  1. VICTOZA [Suspect]
     Dosage: UNK
  2. METFORMIN [Concomitant]
     Indication: TYPE 2 DIABETES MELLITUS
     Dosage: UNK
  3. LISINOPRIL [Concomitant]
     Indication: PRODUCT USED FOR UNKNOWN INDICATION
     Dosage: UNK
  4. COZAAR [Concomitant]
     Indication: PRODUCT USED FOR UNKNOWN INDICATION
     Dosage: UNK
  5. FLONASE [Concomitant]
     Indication: PRODUCT USED FOR UNKNOWN INDICATION
     Dosage: UNK
  6. HYDROCHLOROTHIAZIDE [Concomitant]
     Indication: PRODUCT USED FOR UNKNOWN INDICATION
     Dosage: UNK
  7. VICTOZA [Suspect]
     Indication: TYPE 2 DIABETES MELLITUS
     Dosage: 0.6 MG, QD
     Route: 058
     Dates: start: 20101022, end: 20101001
  8. GLIPIZIDE [Concomitant]
     Indication: TYPE 2 DIABETES MELLITUS
     Dosage: UNK
  9. LOVASTATIN [Concomitant]
     Indication: PRODUCT USED FOR UNKNOWN INDICATION
     Dosage: UNK

REACTIONS (10)
  - MYALGIA [None]
  - HYPOPHAGIA [None]
  - NAUSEA [None]
  - ASTHENIA [None]
  - X-RAY GASTROINTESTINAL TRACT ABNORMAL [None]
  - ABDOMINAL DISCOMFORT [None]
  - DIARRHOEA [None]
  - VOMITING [None]
  - DIZZINESS [None]
  - FATIGUE [None]
